FAERS Safety Report 25333632 (Version 4)
Quarter: 2025Q3

REPORT INFORMATION
  Report Type: Report from Study
  Country: EU (occurrence: EU)
  Receive Date: 20250520
  Receipt Date: 20250909
  Transmission Date: 20251020
  Serious: Yes (Hospitalization, Other)
  Sender: TAKEDA
  Company Number: EU-TAKEDA-ALL1-2013-07890

PATIENT
  Age: 63 Year
  Sex: Female
  Weight: 67 kg

DRUGS (8)
  1. VELAGLUCERASE ALFA [Suspect]
     Active Substance: VELAGLUCERASE ALFA
     Indication: Gaucher^s disease
  2. VELAGLUCERASE ALFA [Suspect]
     Active Substance: VELAGLUCERASE ALFA
     Dosage: 4400 INTERNATIONAL UNIT, Q3WEEKS
     Dates: start: 20201211
  3. RUXOLITINIB [Concomitant]
     Active Substance: RUXOLITINIB
  4. EXEMESTANE [Concomitant]
     Active Substance: EXEMESTANE
     Dosage: UNK UNK, QD
  5. ASPIRIN LYSINE [Concomitant]
     Active Substance: ASPIRIN LYSINE
     Dosage: 100 MILLIGRAM, QD
  6. AMLODIPINE BESYLATE [Concomitant]
     Active Substance: AMLODIPINE BESYLATE
     Dosage: 5 MILLIGRAM, QD
  7. ESOMEPRAZOLE [Concomitant]
     Active Substance: ESOMEPRAZOLE
     Dosage: 20 MILLIGRAM, QD
  8. CHOLECALCIFEROL [Concomitant]
     Active Substance: CHOLECALCIFEROL
     Dosage: 50000 INTERNATIONAL UNIT, MONTHLY

REACTIONS (10)
  - Platelet count increased [Unknown]
  - Headache [Recovering/Resolving]
  - Infusion site pain [Recovered/Resolved]
  - Infusion related reaction [Recovered/Resolved]
  - Contusion [Unknown]
  - Procedural pain [Unknown]
  - Influenza [Unknown]
  - Full blood count abnormal [Unknown]
  - Phlebitis [Unknown]
  - Poor venous access [Unknown]

NARRATIVE: CASE EVENT DATE: 20131112
